FAERS Safety Report 6466031-5 (Version None)
Quarter: 2009Q4

REPORT INFORMATION
  Report Type: 
  Country: None (occurrence: None)
  Receive Date: 20091202
  Receipt Date: 20091124
  Transmission Date: 20100525
  Serious: Yes (Other)
  Sender: FDA-Public Use
  Company Number: US-JNJFOC-20091107738

PATIENT
  Sex: Male
  Weight: 77.11 kg

DRUGS (3)
  1. DURAGESIC-100 [Suspect]
     Indication: CANCER PAIN
     Route: 062
  2. UNSPECIFIED BLOOD PRESSURE MEDS [Concomitant]
     Indication: HYPERTENSION
     Route: 065
  3. HYDROCODONE [Concomitant]
     Indication: PAIN
     Dosage: 10/650 6 IN 24 HOURS AS NEEDED
     Route: 048

REACTIONS (2)
  - ABNORMAL LOSS OF WEIGHT [None]
  - WRONG TECHNIQUE IN DRUG USAGE PROCESS [None]
